FAERS Safety Report 8602363-X (Version None)
Quarter: 2012Q3

REPORT INFORMATION
  Report Type: 
  Country: None (occurrence: None)
  Receive Date: 20120817
  Receipt Date: 20120807
  Transmission Date: 20120928
  Serious: Yes (Hospitalization)
  Sender: FDA-Public Use
  Company Number: DE-UCBSA-063527

PATIENT
  Sex: Female

DRUGS (1)
  1. CIMZIA [Suspect]
     Indication: RHEUMATOID ARTHRITIS
     Dosage: 200 MG
     Dates: start: 20101201, end: 20110601

REACTIONS (3)
  - IMPAIRED HEALING [None]
  - ABDOMINAL HERNIA [None]
  - WOUND DEHISCENCE [None]
